FAERS Safety Report 19145058 (Version 2)
Quarter: 2021Q2

REPORT INFORMATION
  Report Type: Report from Study
  Country: GB (occurrence: GB)
  Receive Date: 20210416
  Receipt Date: 20210429
  Transmission Date: 20210717
  Serious: Yes (Death)
  Sender: FDA-Public Use
  Company Number: NVSC2021GB084544

PATIENT
  Sex: Female

DRUGS (1)
  1. MIDOSTAURIN [Suspect]
     Active Substance: MIDOSTAURIN
     Indication: SYSTEMIC MASTOCYTOSIS
     Dosage: UNK
     Route: 048

REACTIONS (2)
  - Death [Fatal]
  - Drug ineffective for unapproved indication [Unknown]
